FAERS Safety Report 8402657-7 (Version None)
Quarter: 2012Q2

REPORT INFORMATION
  Report Type: 
  Country: None (occurrence: None)
  Receive Date: 20120529
  Receipt Date: 20120514
  Transmission Date: 20120825
  Serious: Yes (Hospitalization)
  Sender: FDA-Public Use
  Company Number: 12NL004649

PATIENT
  Age: 26 Year
  Sex: Male

DRUGS (4)
  1. BACLOFEN [Concomitant]
  2. ACETAMINOPHEN [Concomitant]
  3. VALPROIC ACID [Suspect]
     Indication: EPILEPSY
     Dosage: 500 MG, BID
  4. CLEMASTINE FUMARATE [Concomitant]

REACTIONS (3)
  - ACUTE HEPATIC FAILURE [None]
  - DRUG RASH WITH EOSINOPHILIA AND SYSTEMIC SYMPTOMS [None]
  - DRUG LEVEL BELOW THERAPEUTIC [None]
